FAERS Safety Report 4970463-1 (Version None)
Quarter: 2006Q2

REPORT INFORMATION
  Report Type: 
  Country: None (occurrence: None)
  Receive Date: 20060411
  Receipt Date: 20060411
  Transmission Date: 20061013
  Serious: No
  Sender: FDA-Public Use
  Company Number: None

PATIENT
  Age: 10 Year
  Sex: Female
  Weight: 28.5766 kg

DRUGS (2)
  1. FLOVENT HFA [Suspect]
     Indication: BRONCHIAL DISORDER
     Dosage: 88 MCG   TWICE DAILY   OTHER
     Route: 050
     Dates: start: 20060208, end: 20060408
  2. FLOVENT HFA [Suspect]
     Indication: INFLAMMATION
     Dosage: 88 MCG   TWICE DAILY   OTHER
     Route: 050
     Dates: start: 20060208, end: 20060408

REACTIONS (1)
  - INTRAOCULAR PRESSURE INCREASED [None]
